FAERS Safety Report 6896788-0 (Version None)
Quarter: 2010Q3

REPORT INFORMATION
  Report Type: 
  Country: None (occurrence: None)
  Receive Date: 20100802
  Receipt Date: 20070223
  Transmission Date: 20110219
  Serious: No
  Sender: FDA-Public Use
  Company Number: US-PFIZER INC-2007004122

PATIENT
  Sex: Female
  Weight: 74.84 kg

DRUGS (16)
  1. LYRICA [Suspect]
     Indication: FIBROMYALGIA
     Dates: start: 20061010
  2. ALL OTHER THERAPEUTIC PRODUCTS [Concomitant]
  3. DIAMOX SRC [Concomitant]
  4. REGLAN [Concomitant]
  5. MIRAPEX [Concomitant]
  6. PROMETHAZINE [Concomitant]
     Dates: start: 20050101
  7. WARFARIN SODIUM [Concomitant]
     Dates: start: 20060801
  8. PARACETAMOL [Concomitant]
     Dates: start: 20051201
  9. IMITREX [Concomitant]
  10. CIPROFLOXACIN [Concomitant]
  11. NORCO [Concomitant]
  12. BUTORPHANOL TARTRATE [Concomitant]
     Route: 045
  13. VITAMIN D [Concomitant]
  14. RELPAX [Concomitant]
  15. FLEXERIL [Concomitant]
  16. TRAMADOL HYDROCHLORIDE [Concomitant]

REACTIONS (2)
  - ASTHMA [None]
  - SLEEP DISORDER [None]
